FAERS Safety Report 6525392-9 (Version None)
Quarter: 2009Q4

REPORT INFORMATION
  Report Type: 
  Country: None (occurrence: None)
  Receive Date: 20091214
  Receipt Date: 20090409
  Transmission Date: 20100525
  Serious: Yes (Other)
  Sender: FDA-Public Use
  Company Number: 626795

PATIENT
  Age: 62 Year
  Sex: Male

DRUGS (6)
  1. PEGASYS [Suspect]
     Indication: HEPATITIS C
     Dates: start: 20080307, end: 20090130
  2. RIBAVIRIN [Suspect]
     Indication: HEPATITIS C
     Dosage: ORAL
     Route: 048
     Dates: start: 20080307, end: 20090130
  3. CELLCEPT [Suspect]
     Indication: IMMUNOSUPPRESSION
     Dosage: 1 PER DAY
  4. PROGRAF [Suspect]
     Indication: IMMUNOSUPPRESSION
     Dosage: 0.5 MG 1 PER DAY
     Dates: start: 20070801
  5. PROCRIT [Suspect]
     Indication: ANAEMIA
     Dosage: 40000 IU 1 PER WEEK SUBCUTANEOUS
     Route: 058
     Dates: start: 20080522, end: 20090201
  6. ACETAMINOPHEN [Concomitant]

REACTIONS (2)
  - GOUT [None]
  - HAEMOLYSIS [None]
